FAERS Safety Report 8410721-1 (Version None)
Quarter: 2012Q2

REPORT INFORMATION
  Report Type: 
  Country: None (occurrence: None)
  Receive Date: 20120605
  Receipt Date: 20120524
  Transmission Date: 20120825
  Serious: Yes (Hospitalization, Other)
  Sender: FDA-Public Use
  Company Number: US-ELI_LILLY_AND_COMPANY-US201003007904

PATIENT
  Sex: Female

DRUGS (9)
  1. FORTEO [Suspect]
     Indication: OSTEOPOROSIS
     Dosage: 20 UG, QD
     Route: 058
     Dates: start: 20100601
  2. FORTEO [Suspect]
     Dosage: 20 UG, QD
     Route: 058
  3. FORTEO [Suspect]
     Dosage: 20 UG, QD
     Route: 058
     Dates: start: 20110101, end: 20111228
  4. GABAPENTIN [Concomitant]
  5. ENALAPRIL MALEATE AND HYDROCHLOROTHIAZIDE [Concomitant]
     Dosage: UNK, UNKNOWN
     Route: 065
  6. CORTISONE ACETATE [Concomitant]
     Dosage: UNK, OTHER
  7. HYDROCHLOROTHIAZIDE [Concomitant]
  8. FORTEO [Suspect]
     Dosage: 20 UG, QD
     Route: 058
  9. FORTEO [Suspect]
     Dosage: 20 UG, QD
     Route: 058
     Dates: end: 20100101

REACTIONS (10)
  - NERVE COMPRESSION [None]
  - BACK PAIN [None]
  - PAIN [None]
  - SPINAL CORD COMPRESSION [None]
  - INJECTION SITE RASH [None]
  - SPONDYLOLISTHESIS [None]
  - FALL [None]
  - INJECTION SITE ERYTHEMA [None]
  - HYPOTENSION [None]
  - PAIN IN EXTREMITY [None]
